FAERS Safety Report 7413516-0 (Version None)
Quarter: 2011Q2

REPORT INFORMATION
  Report Type: 
  Country: None (occurrence: None)
  Receive Date: 20110413
  Receipt Date: 20110330
  Transmission Date: 20111010
  Serious: Yes (Hospitalization)
  Sender: FDA-Public Use
  Company Number: FR-PFIZER INC-HQWYE002318AUG05

PATIENT
  Age: 92 Year
  Sex: Female

DRUGS (5)
  1. INIPOMP [Suspect]
     Dosage: 20 MG, 1X/DAY
     Route: 048
     Dates: start: 20050114, end: 20050628
  2. ASPIRIN [Suspect]
     Dosage: 75 MG, 1X/DAY
     Route: 048
  3. SECTRAL [Suspect]
     Dosage: 100 MG, 1X/DAY
     Route: 048
  4. AMLODIPINE BESYLATE [Suspect]
     Dosage: 5 MG, 1X/DAY
     Route: 048
  5. CORVASAL [Suspect]
     Dosage: 4 MG, 3X/DAY
     Route: 048

REACTIONS (2)
  - HYPONATRAEMIA [None]
  - DISORIENTATION [None]
